FAERS Safety Report 7600365-3 (Version None)
Quarter: 2011Q3

REPORT INFORMATION
  Report Type: 
  Country: None (occurrence: None)
  Receive Date: 20110711
  Receipt Date: 20110628
  Transmission Date: 20111222
  Serious: Yes (Hospitalization, Other)
  Sender: FDA-Public Use
  Company Number: US-ELI_LILLY_AND_COMPANY-US201107001264

PATIENT
  Sex: Female

DRUGS (1)
  1. FORTEO [Suspect]
     Indication: OSTEOPOROSIS
     Dosage: 20 UG, QD
     Dates: start: 20100901

REACTIONS (5)
  - HUMERUS FRACTURE [None]
  - FALL [None]
  - BONE EROSION [None]
  - BLOOD PRESSURE DECREASED [None]
  - FULL BLOOD COUNT DECREASED [None]
